FAERS Safety Report 24468642 (Version 2)
Quarter: 2024Q4

REPORT INFORMATION
  Report Type: Spontaneous
  Country: US (occurrence: US)
  Receive Date: 20241018
  Receipt Date: 20241106
  Transmission Date: 20250115
  Serious: Yes (Hospitalization, Other)
  Sender: PFIZER
  Company Number: US-PFIZER INC-PV202400038093

PATIENT
  Age: 73 Year
  Sex: Female
  Weight: 72.57 kg

DRUGS (10)
  1. INLYTA [Suspect]
     Active Substance: AXITINIB
     Indication: Renal cancer
     Dosage: UNK
     Dates: start: 2012
  2. INLYTA [Suspect]
     Active Substance: AXITINIB
     Dosage: UNK
     Dates: start: 2017
  3. INLYTA [Suspect]
     Active Substance: AXITINIB
     Dosage: 1 MG, 1X/DAY
  4. INLYTA [Suspect]
     Active Substance: AXITINIB
     Dosage: 2 MG, 1X/DAY
  5. INLYTA [Suspect]
     Active Substance: AXITINIB
     Dosage: 3 MG, 1X/DAY
  6. INLYTA [Suspect]
     Active Substance: AXITINIB
     Dosage: 4 MG, 1X/DAY
  7. INLYTA [Suspect]
     Active Substance: AXITINIB
     Dosage: 1 MG, 1X/DAY
     Dates: start: 20240826, end: 2024
  8. INLYTA [Suspect]
     Active Substance: AXITINIB
     Dosage: 2 MG, 1X/DAY
     Dates: start: 20240923
  9. INLYTA [Suspect]
     Active Substance: AXITINIB
     Dosage: 3 MG, 1X/DAY
     Dates: start: 20241014
  10. KEYTRUDA [Suspect]
     Active Substance: PEMBROLIZUMAB
     Indication: Renal cancer
     Dosage: EVERY 3 WEEKS

REACTIONS (9)
  - Haematoma [Unknown]
  - Thrombosis [Unknown]
  - Hernia [Unknown]
  - Second primary malignancy [Unknown]
  - Uterine cancer [Unknown]
  - Somnolence [Unknown]
  - Fatigue [Unknown]
  - Asthenia [Unknown]
  - Neoplasm progression [Unknown]

NARRATIVE: CASE EVENT DATE: 20240301
